FAERS Safety Report 5454733-9 (Version None)
Quarter: 2007Q3

REPORT INFORMATION
  Report Type: 
  Country: None (occurrence: None)
  Receive Date: 20070917
  Receipt Date: 20070228
  Transmission Date: 20080115
  Serious: Yes (Hospitalization)
  Sender: FDA-Public Use
  Company Number: US-ASTRAZENECA-2006UW12330

PATIENT
  Age: 48 Year
  Sex: Male
  Weight: 101.4 kg

DRUGS (4)
  1. SEROQUEL [Suspect]
     Route: 048
     Dates: start: 20030628
  2. ZYPREXA [Suspect]
  3. ABILIFY [Concomitant]
  4. RISPERDAL [Concomitant]
     Dates: start: 20030318, end: 20040501

REACTIONS (2)
  - DIABETES MELLITUS [None]
  - PNEUMONIA [None]
